FAERS Safety Report 23594660 (Version 1)
Quarter: 2024Q1

REPORT INFORMATION
  Report Type: Spontaneous
  Country: US (occurrence: US)
  Receive Date: 20240305
  Receipt Date: 20240305
  Transmission Date: 20240410
  Serious: No
  Sender: FDA-Public Use
  Company Number: US-BRISTOL-MYERS SQUIBB COMPANY-2024-033260

PATIENT
  Age: 90 Year
  Sex: Male

DRUGS (3)
  1. ELIQUIS [Suspect]
     Active Substance: APIXABAN
     Indication: Product used for unknown indication
     Route: 048
  2. TALAZOPARIB TOSYLATE [Suspect]
     Active Substance: TALAZOPARIB TOSYLATE
     Indication: Product used for unknown indication
     Route: 048
  3. XTANDI [Suspect]
     Active Substance: ENZALUTAMIDE
     Indication: Product used for unknown indication
     Route: 048

REACTIONS (4)
  - Rhinorrhoea [Unknown]
  - Sneezing [Unknown]
  - Lacrimation increased [Unknown]
  - Off label use [Unknown]
